FAERS Safety Report 23411308 (Version 1)
Quarter: 2024Q1

REPORT INFORMATION
  Report Type: Spontaneous
  Country: CN (occurrence: CN)
  Receive Date: 20240117
  Receipt Date: 20240117
  Transmission Date: 20240409
  Serious: Yes (Other)
  Sender: FDA-Public Use
  Company Number: CN-PFIZER INC-PV202400006115

PATIENT
  Age: 8 Year
  Sex: Female
  Weight: 28.3 kg

DRUGS (2)
  1. AZITHROMYCIN [Suspect]
     Active Substance: AZITHROMYCIN
     Indication: Bronchitis
     Dosage: 270 MG, 1X/DAY
     Route: 048
     Dates: start: 20231226, end: 20231231
  2. AMBROXOL HYDROCHLORIDE [Concomitant]
     Active Substance: AMBROXOL HYDROCHLORIDE
     Dosage: 15 MG, 3X/DAY
     Dates: start: 20231226

REACTIONS (8)
  - Hypersensitivity [Recovering/Resolving]
  - Rash [Recovered/Resolved]
  - Pruritus [Unknown]
  - Nausea [Unknown]
  - Vomiting [Unknown]
  - Lip erythema [Unknown]
  - Lip swelling [Unknown]
  - Off label use [Unknown]

NARRATIVE: CASE EVENT DATE: 20231226
